FAERS Safety Report 6035197-3 (Version None)
Quarter: 2009Q1

REPORT INFORMATION
  Report Type: 
  Country: None (occurrence: None)
  Receive Date: 20090109
  Receipt Date: 20090102
  Transmission Date: 20090719
  Serious: Yes (Death)
  Sender: FDA-Public Use
  Company Number: 1000003368

PATIENT
  Age: 67 Year
  Sex: Male

DRUGS (6)
  1. MEMANTINE HCL [Suspect]
     Indication: DEMENTIA ALZHEIMER'S TYPE
     Dosage: 20 MG (10 MG, 2 IN 1 D), ORAL
     Route: 048
     Dates: start: 20080301
  2. BARNIDIPINE HCL (TABLETS) [Concomitant]
  3. GLICLAZIDE (TABLETS) [Concomitant]
  4. METFORMINE (TABLETS) [Concomitant]
  5. RIVASTIGMINE (TABLETS) [Concomitant]
  6. SERTRALINE [Concomitant]

REACTIONS (1)
  - COMPLETED SUICIDE [None]
